FAERS Safety Report 8433238 (Version 2)
Quarter: 2012Q4

REPORT INFORMATION
  Report Type: 
  Country: US (occurrence: US)
  Receive Date: 20120229
  Receipt Date: 20121025
  Transmission Date: 20130627
  Serious: Yes (Other)
  Sender: FDA-Public Use
  Company Number: US-ASTRAZENECA-2012SE11795

PATIENT
  Age: 83 Year
  Sex: Male

DRUGS (2)
  1. ATACAND [Suspect]
     Route: 048
  2. TOPROL XL [Suspect]
     Route: 048

REACTIONS (5)
  - Prostatic disorder [Unknown]
  - Hypoacusis [Unknown]
  - Visual impairment [Unknown]
  - Confusional state [Unknown]
  - Memory impairment [Unknown]
